FAERS Safety Report 11553271 (Version 1)
Quarter: 2015Q3

REPORT INFORMATION
  Report Type: Spontaneous
  Country: US (occurrence: US)
  Receive Date: 20150925
  Receipt Date: 20150925
  Transmission Date: 20151125
  Serious: Yes (Death)
  Sender: FDA-Public Use
  Company Number: US-SHENZHEN TECHDOW PHARMACEUTICAL CO. LTD-US-2015TEC0000029

PATIENT

DRUGS (2)
  1. COUMADIN [Concomitant]
     Active Substance: WARFARIN SODIUM
     Indication: ATRIAL FIBRILLATION
     Dosage: UNK
  2. HEPARIN SODIUM INJECTION USP, PRESERVATIVE FREE (HEPARIN SODIUM) INJECTION [Suspect]
     Active Substance: HEPARIN SODIUM
     Indication: CAROTID ARTERY OCCLUSION
     Dosage: UNK

REACTIONS (6)
  - Headache [Fatal]
  - Neurological decompensation [None]
  - Brain herniation [Fatal]
  - Brain injury [Fatal]
  - Mental status changes [Fatal]
  - Subdural haematoma [None]
